FAERS Safety Report 6186338-9 (Version None)
Quarter: 2009Q2

REPORT INFORMATION
  Report Type: 
  Country: None (occurrence: None)
  Receive Date: 20090511
  Receipt Date: 20090506
  Transmission Date: 20091009
  Serious: Yes (Hospitalization)
  Sender: FDA-Public Use
  Company Number: FR-ABBOTT-09P-056-0571809-00

PATIENT
  Sex: Male

DRUGS (2)
  1. DEPAKENE [Suspect]
     Indication: OVERDOSE
     Route: 048
     Dates: start: 20090407, end: 20090407
  2. DEPAKENE [Concomitant]
     Indication: EPILEPSY

REACTIONS (5)
  - COMA [None]
  - DRUG LEVEL ABOVE THERAPEUTIC [None]
  - HYPERAMMONAEMIA [None]
  - HYPERLACTACIDAEMIA [None]
  - INTENTIONAL OVERDOSE [None]
